FAERS Safety Report 12750499 (Version 1)
Quarter: 2016Q3

REPORT INFORMATION
  Report Type: Spontaneous
  Country: US (occurrence: US)
  Receive Date: 20160916
  Receipt Date: 20160916
  Transmission Date: 20161109
  Serious: Yes (Death, Hospitalization)
  Sender: FDA-Public Use
  Company Number: US-UPSHER-SMITH LABORATORIES, INC.-16001787

PATIENT
  Age: 71 Year
  Sex: Male

DRUGS (2)
  1. PACERONE [Suspect]
     Active Substance: AMIODARONE HYDROCHLORIDE
     Indication: ATRIAL FIBRILLATION
     Dosage: UNK, UNK
     Route: 048
     Dates: start: 201310, end: 201404
  2. AMIODARONE HCL [Suspect]
     Active Substance: AMIODARONE HYDROCHLORIDE
     Indication: ATRIAL FIBRILLATION
     Dosage: UNK, UNK
     Route: 048
     Dates: start: 201310, end: 201404

REACTIONS (12)
  - Asthenia [Unknown]
  - Fatigue [Unknown]
  - Wheezing [Unknown]
  - Cough [Unknown]
  - Irritability [Unknown]
  - Restlessness [Unknown]
  - Nervousness [Unknown]
  - Pulmonary fibrosis [Fatal]
  - Dyspnoea [Unknown]
  - Respiratory failure [Unknown]
  - Depression [Unknown]
  - Disturbance in attention [Unknown]

NARRATIVE: CASE EVENT DATE: 2014
